FAERS Safety Report 5157452-1 (Version None)
Quarter: 2006Q4

REPORT INFORMATION
  Report Type: 
  Country: None (occurrence: None)
  Receive Date: 20061127
  Receipt Date: 20061120
  Transmission Date: 20070319
  Serious: Yes (Other)
  Sender: FDA-Public Use
  Company Number: GB-ROCHE-472253

PATIENT
  Age: 18 Year
  Sex: Female
  Weight: 131 kg

DRUGS (1)
  1. XENICAL [Suspect]
     Indication: OBESITY
     Route: 048
     Dates: start: 20061011

REACTIONS (1)
  - GASTROINTESTINAL HAEMORRHAGE [None]
